FAERS Safety Report 7274905-0 (Version None)
Quarter: 2011Q1

REPORT INFORMATION
  Report Type: 
  Country: None (occurrence: None)
  Receive Date: 20110204
  Receipt Date: 20110124
  Transmission Date: 20110831
  Serious: Yes (Hospitalization, Other)
  Sender: FDA-Public Use
  Company Number: ES-JNJFOC-20110106954

PATIENT
  Age: 64 Year
  Sex: Female

DRUGS (5)
  1. INFLIXIMAB [Suspect]
     Indication: CROHN'S DISEASE
     Route: 042
  2. INFLIXIMAB [Suspect]
     Route: 042
  3. INFLIXIMAB [Suspect]
     Route: 042
  4. AZATHIOPRINE [Concomitant]
     Indication: CROHN'S DISEASE
  5. INFLIXIMAB [Suspect]
     Route: 042

REACTIONS (5)
  - LEUKOCYTOCLASTIC VASCULITIS [None]
  - SYSTEMIC LUPUS ERYTHEMATOSUS [None]
  - TRICUSPID VALVE INCOMPETENCE [None]
  - PERICARDITIS [None]
  - BUNDLE BRANCH BLOCK RIGHT [None]
